FAERS Safety Report 22119189 (Version 1)
Quarter: 2023Q1

REPORT INFORMATION
  Report Type: Report from Study
  Country: US (occurrence: US)
  Receive Date: 20230321
  Receipt Date: 20230321
  Transmission Date: 20230417
  Serious: Yes (Life-Threatening, Hospitalization)
  Sender: FDA-Public Use
  Company Number: US-TEVA-2023-US-2869140

PATIENT
  Age: 19 Year
  Sex: Male
  Weight: 62.8 kg

DRUGS (7)
  1. METHOTREXATE [Suspect]
     Active Substance: METHOTREXATE
     Indication: Product used for unknown indication
     Route: 037
     Dates: start: 20191120, end: 20220921
  2. METHOTREXATE [Suspect]
     Active Substance: METHOTREXATE
     Indication: Product used for unknown indication
     Dosage: 26.25 MG EVERY WEEK ON WED
     Route: 048
     Dates: start: 20200902, end: 20221006
  3. PREDNISONE [Suspect]
     Active Substance: PREDNISONE
     Indication: Product used for unknown indication
     Dosage: 70 MILLIGRAM DAILY; 5D
     Route: 048
     Dates: start: 20200826, end: 20220926
  4. VINCRISTINE [Suspect]
     Active Substance: VINCRISTINE
     Indication: Product used for unknown indication
     Route: 042
     Dates: start: 20191204, end: 20220921
  5. RUXOLITINIB [Suspect]
     Active Substance: RUXOLITINIB
     Indication: Acute lymphocytic leukaemia
     Dosage: 170 MILLIGRAM DAILY; 85 MG BID 14D/ON AND 14/D OFF
     Route: 048
     Dates: start: 20191120, end: 20221005
  6. MERCAPTOPURINE [Suspect]
     Active Substance: MERCAPTOPURINE
     Indication: Acute lymphocytic leukaemia
     Dosage: 75 MILLIGRAM DAILY;
     Route: 048
     Dates: start: 20200131, end: 20221006
  7. MEGESTROL [Concomitant]
     Active Substance: MEGESTROL
     Indication: Product used for unknown indication
     Dosage: ONGOING
     Dates: start: 20220921

REACTIONS (4)
  - Febrile neutropenia [Recovered/Resolved]
  - Sepsis [Recovered/Resolved]
  - Pneumonia [Recovering/Resolving]
  - Respiratory failure [Recovered/Resolved]

NARRATIVE: CASE EVENT DATE: 20221006
